FAERS Safety Report 13674806 (Version 1)
Quarter: 2017Q2

REPORT INFORMATION
  Report Type: Spontaneous
  Country: US (occurrence: US)
  Receive Date: 20170621
  Receipt Date: 20170621
  Transmission Date: 20170830
  Serious: No
  Sender: FDA-Public Use
  Company Number: US-PFIZER INC-2017265098

PATIENT
  Age: 65 Year
  Sex: Male

DRUGS (5)
  1. XELJANZ XR [Suspect]
     Active Substance: TOFACITINIB CITRATE
     Indication: ARTHROPATHY
  2. XELJANZ XR [Suspect]
     Active Substance: TOFACITINIB CITRATE
     Indication: PAIN
  3. XELJANZ XR [Suspect]
     Active Substance: TOFACITINIB CITRATE
     Indication: MYOSITIS
     Dosage: 11 MG, UNK
  4. XELJANZ XR [Suspect]
     Active Substance: TOFACITINIB CITRATE
     Indication: MUSCLE CONTRACTURE
  5. XELJANZ XR [Suspect]
     Active Substance: TOFACITINIB CITRATE
     Indication: MYALGIA

REACTIONS (12)
  - Neck pain [Unknown]
  - Back pain [Unknown]
  - Red blood cell sedimentation rate increased [Unknown]
  - Myalgia [Unknown]
  - Fatigue [Unknown]
  - C-reactive protein increased [Unknown]
  - Arthralgia [Unknown]
  - Joint stiffness [Unknown]
  - Haemoglobin decreased [Unknown]
  - Product use in unapproved indication [Unknown]
  - Muscle spasms [Unknown]
  - Muscular weakness [Unknown]
